FAERS Safety Report 7478632-6 (Version None)
Quarter: 2011Q2

REPORT INFORMATION
  Report Type: 
  Country: None (occurrence: None)
  Receive Date: 20110511
  Receipt Date: 20110511
  Transmission Date: 20111010
  Serious: Yes (Other)
  Sender: FDA-Public Use
  Company Number: None

PATIENT
  Age: 26 Year
  Sex: Female
  Weight: 58.9676 kg

DRUGS (2)
  1. CELEXA [Suspect]
     Indication: DEPRESSION
     Dates: start: 20110301, end: 20110422
  2. CELEXA [Suspect]
     Indication: ANXIETY
     Dates: start: 20110301, end: 20110422

REACTIONS (7)
  - VOMITING [None]
  - HEADACHE [None]
  - FEELING ABNORMAL [None]
  - DEPRESSION [None]
  - MALAISE [None]
  - DRUG WITHDRAWAL SYNDROME [None]
  - ANXIETY [None]
